FAERS Safety Report 6440090-8 (Version None)
Quarter: 2009Q4

REPORT INFORMATION
  Report Type: 
  Country: None (occurrence: None)
  Receive Date: 20091113
  Receipt Date: 20081006
  Transmission Date: 20100525
  Serious: No
  Sender: FDA-Public Use
  Company Number: A0750812A

PATIENT
  Sex: Male

DRUGS (2)
  1. COREG [Suspect]
     Indication: HYPERTENSION
     Route: 048
  2. COREG CR [Suspect]
     Indication: HYPERTENSION
     Route: 048

REACTIONS (1)
  - DIARRHOEA [None]
